FAERS Safety Report 7424381-X (Version None)
Quarter: 2011Q2

REPORT INFORMATION
  Report Type: 
  Country: None (occurrence: None)
  Receive Date: 20110411
  Receipt Date: 20110328
  Transmission Date: 20111010
  Serious: Yes (Disabling, Other)
  Sender: FDA-Public Use
  Company Number: 2011P1005459

PATIENT
  Age: 51 Year
  Sex: Male
  Weight: 102.0593 kg

DRUGS (15)
  1. PLAVIX [Concomitant]
  2. FENTANYL-25 [Suspect]
     Indication: INTERVERTEBRAL DISC PROTRUSION
     Dosage: TDER
     Route: 062
     Dates: start: 20040301, end: 20040801
  3. FENTANYL-25 [Suspect]
     Indication: EXOSTOSIS
     Dosage: TDER
     Route: 062
     Dates: start: 20040301, end: 20040801
  4. FENTANYL-25 [Suspect]
     Indication: ARTHRALGIA
     Dosage: TDER
     Route: 062
     Dates: start: 20040301, end: 20040801
  5. FENOFIBRATE [Concomitant]
  6. FENTANYL-75 [Suspect]
     Indication: INTERVERTEBRAL DISC PROTRUSION
     Dosage: 1 PATCH; Q3D; TDER
     Route: 062
     Dates: start: 20050101, end: 20110314
  7. FENTANYL-75 [Suspect]
     Indication: ARTHRALGIA
     Dosage: 1 PATCH; Q3D; TDER
     Route: 062
     Dates: start: 20050101, end: 20110314
  8. FENTANYL-75 [Suspect]
     Indication: EXOSTOSIS
     Dosage: 1 PATCH; Q3D; TDER
     Route: 062
     Dates: start: 20050101, end: 20110314
  9. METOPROLOL SUCCINATE [Concomitant]
  10. TARTRATE [Concomitant]
  11. PRAVASTATIN [Concomitant]
  12. ZETIA [Concomitant]
  13. FENTANYL-50 [Suspect]
     Indication: EXOSTOSIS
     Dosage: TDER
     Route: 062
     Dates: start: 20040801, end: 20050101
  14. FENTANYL-50 [Suspect]
     Indication: ARTHRALGIA
     Dosage: TDER
     Route: 062
     Dates: start: 20040801, end: 20050101
  15. FENTANYL-50 [Suspect]
     Indication: INTERVERTEBRAL DISC PROTRUSION
     Dosage: TDER
     Route: 062
     Dates: start: 20040801, end: 20050101

REACTIONS (14)
  - DRUG EFFECT INCREASED [None]
  - FATIGUE [None]
  - TACHYPNOEA [None]
  - DEMENTIA [None]
  - HYPERHIDROSIS [None]
  - DRUG EFFECT DECREASED [None]
  - INCOHERENT [None]
  - HEARING IMPAIRED [None]
  - AMNESIA [None]
  - DYSPNOEA [None]
  - CONDITION AGGRAVATED [None]
  - RETCHING [None]
  - DIZZINESS [None]
  - SOMNOLENCE [None]
